FAERS Safety Report 4847407-6 (Version None)
Quarter: 2005Q4

REPORT INFORMATION
  Report Type: 
  Country: None (occurrence: None)
  Receive Date: 20051205
  Receipt Date: 20051122
  Transmission Date: 20060501
  Serious: Yes (Hospitalization)
  Sender: FDA-Public Use
  Company Number: HQWYE193624OCT05

PATIENT
  Age: 44 Year
  Sex: Female
  Weight: 63.56 kg

DRUGS (7)
  1. PREMPRO [Suspect]
     Indication: OSTEOPOROSIS
     Dosage: ORAL
     Route: 048
     Dates: start: 19930101
  2. PREMARIN [Suspect]
     Indication: MENOPAUSAL SYMPTOMS
     Dosage: ORAL
     Route: 048
     Dates: end: 20030101
  3. CELEXA [Concomitant]
  4. ASPIRIN [Concomitant]
  5. VALIUM [Concomitant]
  6. ALBUTEROL [Concomitant]
  7. PRILOSEC [Concomitant]

REACTIONS (7)
  - AMMONIA INCREASED [None]
  - BLOOD CHOLESTEROL INCREASED [None]
  - CRYING [None]
  - HEPATIC CIRRHOSIS [None]
  - HEPATIC STEATOSIS [None]
  - MOOD SWINGS [None]
  - THROMBOCYTOPENIA [None]
